FAERS Safety Report 8392815-2 (Version None)
Quarter: 2012Q2

REPORT INFORMATION
  Report Type: 
  Country: None (occurrence: None)
  Receive Date: 20120529
  Receipt Date: 20120516
  Transmission Date: 20120825
  Serious: Yes (Hospitalization)
  Sender: FDA-Public Use
  Company Number: US-ELI_LILLY_AND_COMPANY-US201104003712

PATIENT
  Sex: Female

DRUGS (3)
  1. FORTEO [Suspect]
     Indication: OSTEOPOROSIS
     Dosage: 20 UG, QD
     Dates: start: 20110328
  2. FORTEO [Suspect]
     Dosage: 20 UG, QD
  3. CARTIA                             /00002701/ [Concomitant]

REACTIONS (8)
  - DRUG HYPERSENSITIVITY [None]
  - TACHYCARDIA [None]
  - CHRONIC OBSTRUCTIVE PULMONARY DISEASE [None]
  - ARTHRALGIA [None]
  - INJECTION SITE ERYTHEMA [None]
  - TOOTH LOSS [None]
  - DYSPNOEA [None]
  - LUNG INFECTION PSEUDOMONAL [None]
